FAERS Safety Report 9008214 (Version 1)
Quarter: 2013Q1

REPORT INFORMATION
  Report Type: Not Available
  Country: FR (occurrence: FR)
  Receive Date: 20130111
  Receipt Date: 20130111
  Transmission Date: 20140127
  Serious: Yes (Other)
  Sender: FDA-Public Use
  Company Number: FR-ASTELLAS-2013EU000035

PATIENT
  Age: 74 Year
  Sex: Male

DRUGS (4)
  1. PROGRAF [Suspect]
     Indication: RENAL TRANSPLANT
     Dosage: 4 MG, BID
     Route: 048
     Dates: start: 20120226, end: 20120301
  2. PROGRAF [Suspect]
     Dosage: 1.5 MG, UNKNOWN/D
     Route: 065
     Dates: start: 20120304
  3. PROGRAF [Suspect]
     Dosage: 1.5 MG, BID
     Route: 065
     Dates: start: 20120312
  4. CELLCEPT                           /01275102/ [Suspect]
     Indication: RENAL TRANSPLANT
     Dosage: 1 G, BID
     Route: 048
     Dates: start: 20120226

REACTIONS (2)
  - Accidental overdose [Recovered/Resolved]
  - Renal failure [Recovered/Resolved]
